FAERS Safety Report 9511736 (Version 1)
Quarter: 2013Q3

REPORT INFORMATION
  Report Type: Spontaneous
  Country: US (occurrence: None)
  Receive Date: 20130909
  Receipt Date: 20130909
  Transmission Date: 20140515
  Serious: Yes (Life-Threatening)
  Sender: FDA-Public Use
  Company Number: None

PATIENT
  Age: 51 Year
  Sex: Female
  Weight: 86.18 kg

DRUGS (1)
  1. REMICADE UNKNOWN [Suspect]
     Dosage: IV INTO A VEIN
     Route: 042

REACTIONS (2)
  - Anaphylactic shock [None]
  - Infusion related reaction [None]
